FAERS Safety Report 24555737 (Version 2)
Quarter: 2025Q3

REPORT INFORMATION
  Report Type: Report from Study
  Country: US (occurrence: US)
  Receive Date: 20241028
  Receipt Date: 20250810
  Transmission Date: 20251021
  Serious: Yes (Other)
  Sender: ALEXION PHARMACEUTICALS
  Company Number: US-AstraZeneca-CH-00719339AP

PATIENT
  Sex: Male

DRUGS (1)
  1. EXENATIDE [Suspect]
     Active Substance: EXENATIDE
     Indication: Diabetes mellitus
     Dosage: 2 MILLIGRAM, QW
     Route: 065

REACTIONS (7)
  - Back disorder [Unknown]
  - Hypoaesthesia [Unknown]
  - Paraesthesia [Unknown]
  - Product temperature excursion issue [Unknown]
  - Gait disturbance [Unknown]
  - Wrong technique in device usage process [Unknown]
  - Product storage error [Unknown]
